FAERS Safety Report 18449135 (Version 4)
Quarter: 2021Q3

REPORT INFORMATION
  Report Type: Spontaneous
  Country: ES (occurrence: ES)
  Receive Date: 20201102
  Receipt Date: 20210702
  Transmission Date: 20211014
  Serious: Yes (Hospitalization, Other)
  Sender: FDA-Public Use
  Company Number: ES-SUN PHARMACEUTICAL INDUSTRIES LTD-2020RR-265967

PATIENT
  Age: 75 Year
  Sex: Male

DRUGS (14)
  1. MORPHINE [Interacting]
     Active Substance: MORPHINE
     Dosage: 2 MILLIGRAM
     Route: 042
  2. OXYCODONE [Interacting]
     Active Substance: OXYCODONE
     Dosage: 130 MILLIGRAM
  3. DEXAMETHASONE. [Suspect]
     Active Substance: DEXAMETHASONE
     Indication: PAIN
     Dosage: 4 MILLIGRAM, DAILY
     Route: 065
  4. DEXAMETHASONE. [Suspect]
     Active Substance: DEXAMETHASONE
     Dosage: 8 UNK
     Route: 040
  5. METAMIZOLE [Suspect]
     Active Substance: METAMIZOLE
     Indication: PAIN
     Dosage: EVERY 8 H
     Route: 065
  6. OXYCODONE [Interacting]
     Active Substance: OXYCODONE
     Dosage: 60 MILLIGRAM, DAILY
  7. ZOLEDRONIC ACID [Concomitant]
     Active Substance: ZOLEDRONIC ACID
     Indication: PRODUCT USED FOR UNKNOWN INDICATION
     Dosage: MONTHLY
     Route: 065
  8. FENTANYL. [Suspect]
     Active Substance: FENTANYL
     Indication: PAIN
     Dosage: 12 MICROGRAM
     Route: 065
  9. OXYCODONE [Interacting]
     Active Substance: OXYCODONE
     Indication: PAIN
     Dosage: UNK UNK, BID
     Route: 065
  10. MORPHINE [Suspect]
     Active Substance: MORPHINE
     Indication: PAIN
     Dosage: 4 MILLIGRAM, 6DOSE/DAY
     Route: 042
  11. MIDAZOLAM. [Interacting]
     Active Substance: MIDAZOLAM
     Indication: ANXIETY DISORDER
     Dosage: 60 MILLIGRAMS, UNK
     Route: 042
  12. PREGABALIN. [Suspect]
     Active Substance: PREGABALIN
     Indication: PAIN
     Dosage: 75 MILLIGRAM, TID
     Route: 048
  13. PARACETAMOL [Suspect]
     Active Substance: ACETAMINOPHEN
     Indication: PAIN
     Dosage: EVERY 8 H
     Route: 065
  14. ATEZOLIZUMAB. [Concomitant]
     Active Substance: ATEZOLIZUMAB
     Indication: IMMUNOCHEMOTHERAPY
     Route: 065

REACTIONS (4)
  - Constipation [Unknown]
  - Toxicity to various agents [Unknown]
  - Drug interaction [Unknown]
  - Drug ineffective [Unknown]
